FAERS Safety Report 9728242 (Version 1)
Quarter: 2013Q4

REPORT INFORMATION
  Report Type: Report from Study
  Country: CA (occurrence: CA)
  Receive Date: 20131204
  Receipt Date: 20131204
  Transmission Date: 20140711
  Serious: Yes (Other)
  Sender: FDA-Public Use
  Company Number: CA-JNJFOC-20131117170

PATIENT
  Age: 54 Year
  Sex: Male
  Weight: 79.6 kg

DRUGS (5)
  1. REMICADE [Suspect]
     Indication: CROHN^S DISEASE
     Route: 042
     Dates: start: 20090623
  2. ASPIRIN [Concomitant]
     Route: 065
  3. CELEXA [Concomitant]
     Route: 048
  4. B 12 INJECTION [Concomitant]
     Route: 065
  5. HYOSCINE BUTYLBROMIDE [Concomitant]
     Route: 048

REACTIONS (2)
  - Abdominal pain lower [Recovering/Resolving]
  - Muscle spasms [Recovering/Resolving]
